FAERS Safety Report 9049117 (Version 1)
Quarter: 2013Q1

REPORT INFORMATION
  Report Type: Spontaneous
  Country: US (occurrence: US)
  Receive Date: 20130205
  Receipt Date: 20130205
  Transmission Date: 20140127
  Serious: No
  Sender: FDA-Public Use
  Company Number: US-PFIZER INC-2013044478

PATIENT
  Age: 85 Year
  Sex: Male
  Weight: 95.69 kg

DRUGS (11)
  1. ADVIL [Suspect]
     Indication: MUSCULOSKELETAL PAIN
     Dosage: UNK, ONCE A DAY
     Route: 048
     Dates: start: 201301
  2. DILTIAZEM [Concomitant]
     Indication: HYPERTENSION
     Dosage: 350 MG, ONCE A DAY
  3. LOSARTAN [Concomitant]
     Indication: HYPERTENSION
     Dosage: 50 MG, ONCE A DAY
  4. DIAZEPAM [Concomitant]
     Dosage: UNK, AS NEEDED
  5. OMEGA-3 [Concomitant]
     Dosage: UNK, ONCE A DAY
  6. VITAMIN D [Concomitant]
     Dosage: 2000 IU, UNK
  7. PRESERVISION [Concomitant]
     Dosage: TWO TABLETS A DAY
  8. CALCIUM [Concomitant]
     Dosage: UNK
  9. VITAMIN C [Concomitant]
     Dosage: 1000, UNK
  10. ASPIRIN ^BAYER^ [Concomitant]
     Dosage: 325 MG, ONCE A DAY
  11. TRANSFER FACTOR [Concomitant]
     Dosage: UNK, ONCE A DAY

REACTIONS (1)
  - Drug ineffective [Unknown]
